FAERS Safety Report 8977523 (Version 1)
Quarter: 2012Q4

REPORT INFORMATION
  Report Type: 
  Country: GB (occurrence: GB)
  Receive Date: 20121220
  Receipt Date: 20121220
  Transmission Date: 20130627
  Serious: Yes (Hospitalization)
  Sender: FDA-Public Use
  Company Number: GB-WATSON-2012-22009

PATIENT
  Age: 33 Year
  Sex: Female
  Weight: 60 kg

DRUGS (18)
  1. ACYCLOVIR (UNKNOWN) [Suspect]
     Indication: ORAL HERPES
     Dosage: 400mg
     Route: 048
     Dates: start: 20121103, end: 20121108
  2. CEFALEXIN [Suspect]
     Indication: IMPETIGO
     Dosage: 500mg
     Route: 048
     Dates: start: 20121103, end: 20121108
  3. BUSCOPAN [Concomitant]
     Indication: PRODUCT USED FOR UNKNOWN INDICATION
     Dosage: 10mg. (6 separate dosages) 2 to be taken 3 times a day.
     Route: 048
  4. PROCHLORPERAZINE MALEATE [Concomitant]
     Indication: PRODUCT USED FOR UNKNOWN INDICATION
     Dosage: 3 mg, tid
     Route: 002
  5. MAXITROL [Concomitant]
     Indication: PRODUCT USED FOR UNKNOWN INDICATION
     Dosage: 4 DF daily
     Route: 065
  6. CANESTEN [Concomitant]
     Indication: PRODUCT USED FOR UNKNOWN INDICATION
     Dosage: 500 mg, as directed.
     Route: 065
  7. PULMICORT [Concomitant]
     Indication: PRODUCT USED FOR UNKNOWN INDICATION
     Dosage: 200 mcg,as necessary. 1-2 twice a day.
     Route: 055
  8. DUROGESIC DTRANS [Concomitant]
     Indication: PRODUCT USED FOR UNKNOWN INDICATION
     Dosage: 75 micrograms/hour. 3 patches at a time, change after two days
     Route: 065
  9. DUROGESIC DTRANS [Concomitant]
     Dosage: 12 mcg, tid. 12 micrograms/hour. 3 daily, increasing to 3.5 during flares, replaced every 48 hours
     Route: 065
  10. INDOMETACIN [Concomitant]
     Indication: PRODUCT USED FOR UNKNOWN INDICATION
     Dosage: 100 mg, unknown. As necessary maximum twice a day.
  11. NUTRIZYM                           /00014701/ [Concomitant]
     Indication: PRODUCT USED FOR UNKNOWN INDICATION
     Dosage: 1 DF, daily
     Route: 065
  12. SUCRALFATE [Concomitant]
     Indication: PRODUCT USED FOR UNKNOWN INDICATION
     Dosage: 10 ml, bid
     Route: 065
  13. VENTOLIN                           /00139501/ [Concomitant]
     Indication: PRODUCT USED FOR UNKNOWN INDICATION
     Dosage: 100 mcg, unknown. as necessary
     Route: 055
  14. ESOMEPRAZOLE [Concomitant]
     Indication: PRODUCT USED FOR UNKNOWN INDICATION
     Dosage: 40 mg, daily
     Route: 065
  15. CALCEOS [Concomitant]
     Indication: PRODUCT USED FOR UNKNOWN INDICATION
     Dosage: 1 DF, bid
     Route: 065
  16. ETANERCEPT [Concomitant]
     Indication: PRODUCT USED FOR UNKNOWN INDICATION
     Dosage: 25 mg,1 2 weekly
     Route: 065
  17. TYLEX                              /00020001/ [Concomitant]
     Indication: PRODUCT USED FOR UNKNOWN INDICATION
     Dosage: 2 DF, qid as required
     Route: 065
  18. SYSTANE [Concomitant]
     Indication: PRODUCT USED FOR UNKNOWN INDICATION
     Dosage: UNK, unknown
     Route: 065

REACTIONS (1)
  - Pancreatitis [Recovering/Resolving]
